FAERS Safety Report 12527921 (Version 4)
Quarter: 2017Q2

REPORT INFORMATION
  Report Type: Spontaneous
  Country: US (occurrence: US)
  Receive Date: 20160705
  Receipt Date: 20170426
  Transmission Date: 20170830
  Serious: Yes (Congenital Anomaly, Other)
  Sender: FDA-Public Use
  Company Number: PHEH2016US016581

PATIENT
  Sex: Male

DRUGS (2)
  1. ZOFRAN [Suspect]
     Active Substance: ONDANSETRON HYDROCHLORIDE
     Indication: FOETAL EXPOSURE DURING PREGNANCY
     Dosage: MOTHER DOSE: 4 MG, QD
     Route: 064
  2. ZOFRAN [Suspect]
     Active Substance: ONDANSETRON HYDROCHLORIDE
     Indication: FOETAL EXPOSURE DURING PREGNANCY
     Route: 064

REACTIONS (38)
  - Cleft lip [Unknown]
  - Cardiac murmur [Unknown]
  - Swelling face [Unknown]
  - Speech disorder [Unknown]
  - Arthralgia [Unknown]
  - Otitis media [Unknown]
  - Ear infection [Unknown]
  - Congenital hearing disorder [Unknown]
  - Lip swelling [Unknown]
  - Injury [Unknown]
  - Headache [Unknown]
  - Atrial septal defect [Unknown]
  - Foetal exposure during pregnancy [Unknown]
  - Ear pain [Unknown]
  - Cleft palate [Unknown]
  - Cerumen impaction [Unknown]
  - Erythema [Unknown]
  - Ventricular septal defect [Unknown]
  - Language disorder [Unknown]
  - Dehydration [Unknown]
  - Nasal congestion [Unknown]
  - Cough [Unknown]
  - Oropharyngeal pain [Unknown]
  - Contusion [Unknown]
  - Bronchitis [Unknown]
  - Diarrhoea [Unknown]
  - Vision abnormal neonatal [Unknown]
  - Heart disease congenital [Unknown]
  - Premature baby [Unknown]
  - Pneumonia [Unknown]
  - Abdominal pain upper [Unknown]
  - Pain in jaw [Unknown]
  - Ecchymosis [Unknown]
  - Dermatitis contact [Unknown]
  - Fall [Unknown]
  - Joint injury [Unknown]
  - Viral infection [Unknown]
  - Rash pruritic [Unknown]
